FAERS Safety Report 8789758 (Version 1)
Quarter: 2012Q4

REPORT INFORMATION
  Report Type: Spontaneous
  Country: US (occurrence: None)
  Receive Date: 20120911
  Receipt Date: 20120911
  Transmission Date: 20130627
  Serious: Yes (Hospitalization)
  Sender: FDA-Public Use
  Company Number: None

PATIENT
  Sex: Female
  Weight: 57.06 kg

DRUGS (2)
  1. XANAX [Suspect]
     Indication: PANIC DISORDER
     Route: 048
     Dates: start: 2001
  2. XANAX [Suspect]
     Indication: ANXIETY
     Route: 048
     Dates: start: 2001

REACTIONS (1)
  - Dyspnoea [None]
